FAERS Safety Report 23990528 (Version 3)
Quarter: 2025Q1

REPORT INFORMATION
  Report Type: Report from Study
  Country: US (occurrence: US)
  Receive Date: 20240619
  Receipt Date: 20250306
  Transmission Date: 20250409
  Serious: Yes (Hospitalization, Other)
  Sender: BOEHRINGER INGELHEIM
  Company Number: US-BoehringerIngelheim-2023-BI-260820

PATIENT
  Age: 93 Year
  Sex: Male

DRUGS (4)
  1. OFEV [Suspect]
     Active Substance: NINTEDANIB
     Indication: Idiopathic pulmonary fibrosis
     Dates: start: 20230301, end: 20240606
  2. OFEV [Suspect]
     Active Substance: NINTEDANIB
  3. ELIQUIS [Concomitant]
     Active Substance: APIXABAN
     Indication: Product used for unknown indication
  4. AMLODIPINE [Concomitant]
     Active Substance: AMLODIPINE BESYLATE
     Indication: Product used for unknown indication

REACTIONS (9)
  - Heart valve replacement [Unknown]
  - Myocardial infarction [Unknown]
  - Cardiac failure congestive [Unknown]
  - Post procedural haemorrhage [Recovering/Resolving]
  - Diarrhoea [Recovered/Resolved]
  - Diarrhoea [Unknown]
  - Faeces soft [Not Recovered/Not Resolved]
  - Constipation [Unknown]
  - Diarrhoea [Recovering/Resolving]

NARRATIVE: CASE EVENT DATE: 20240606
